FAERS Safety Report 25617604 (Version 1)
Quarter: 2025Q3

REPORT INFORMATION
  Report Type: Spontaneous
  Country: US (occurrence: US)
  Receive Date: 20250729
  Receipt Date: 20250729
  Transmission Date: 20251021
  Serious: No
  Sender: BAYER HEALTHCARE PHARMACEUTICALS INC.
  Company Number: US-BAYER-2025A098884

PATIENT
  Age: 31 Year
  Sex: Female

DRUGS (1)
  1. NATAZIA [Suspect]
     Active Substance: DIENOGEST\ESTRADIOL VALERATE
     Indication: Endometriosis
     Route: 048

REACTIONS (2)
  - Product dose omission issue [None]
  - Product use in unapproved indication [None]

NARRATIVE: CASE EVENT DATE: 20250722
